FAERS Safety Report 10182063 (Version 76)
Quarter: 2020Q4

REPORT INFORMATION
  Report Type: Other
  Country: CA (occurrence: CA)
  Receive Date: 20140519
  Receipt Date: 20201225
  Transmission Date: 20210113
  Serious: Yes (Other)
  Sender: FDA-Public Use
  Company Number: CA-ROCHE-1385318

PATIENT
  Age: 81 Year
  Sex: Male
  Weight: 74 kg

DRUGS (22)
  1. THYMOL [Concomitant]
     Active Substance: THYMOL
     Indication: INGROWING NAIL
  2. CLINDAMYCIN. [Concomitant]
     Active Substance: CLINDAMYCIN
     Dates: start: 20201014
  3. WINPRED [Concomitant]
     Active Substance: PREDNISONE
     Indication: PRODUCT USED FOR UNKNOWN INDICATION
     Route: 065
  4. ACETYLSALICYLIC ACID [Concomitant]
     Active Substance: ASPIRIN
     Indication: PRODUCT USED FOR UNKNOWN INDICATION
     Dosage: ONGOING
  5. ASA [Concomitant]
     Active Substance: ASPIRIN
     Indication: PRODUCT USED FOR UNKNOWN INDICATION
  6. VALACYCLOVIR [Concomitant]
     Active Substance: VALACYCLOVIR HYDROCHLORIDE
     Indication: PRODUCT USED FOR UNKNOWN INDICATION
  7. NEVANAC [Concomitant]
     Active Substance: NEPAFENAC
     Dosage: 0.1% FROM A 5ML BOTTLE
  8. ASPIRIN. [Concomitant]
     Active Substance: ASPIRIN
     Indication: PRODUCT USED FOR UNKNOWN INDICATION
     Dosage: BID FOR 2 MONTHS
  9. ASPIRIN. [Concomitant]
     Active Substance: ASPIRIN
     Dosage: 1 TABLET
  10. OMEPRAZOLE. [Concomitant]
     Active Substance: OMEPRAZOLE
     Indication: PROPHYLAXIS
  11. HYDROXYCHLOROQUINE [Concomitant]
     Active Substance: HYDROXYCHLOROQUINE
     Indication: PRODUCT USED FOR UNKNOWN INDICATION
     Route: 065
  12. VIGAMOX [Concomitant]
     Active Substance: MOXIFLOXACIN HYDROCHLORIDE
     Dosage: 0.5% FROM 3ML BOTTAL
  13. METOPROLOL. [Concomitant]
     Active Substance: METOPROLOL
     Indication: PRODUCT USED FOR UNKNOWN INDICATION
     Route: 065
  14. TYLENOL [Concomitant]
     Active Substance: ACETAMINOPHEN
     Indication: PRODUCT USED FOR UNKNOWN INDICATION
     Route: 065
  15. ROSUVASTATIN. [Concomitant]
     Active Substance: ROSUVASTATIN
     Indication: PRODUCT USED FOR UNKNOWN INDICATION
  16. PREDNISONE. [Concomitant]
     Active Substance: PREDNISONE
     Indication: PRODUCT USED FOR UNKNOWN INDICATION
  17. NAPROXEN. [Concomitant]
     Active Substance: NAPROXEN
     Indication: PRODUCT USED FOR UNKNOWN INDICATION
     Dates: start: 201408, end: 201408
  18. RISEDRONATE [Concomitant]
     Active Substance: RISEDRONATE SODIUM
     Indication: PRODUCT USED FOR UNKNOWN INDICATION
     Route: 065
  19. VITAMIN B12 [Concomitant]
     Active Substance: CYANOCOBALAMIN
     Indication: PRODUCT USED FOR UNKNOWN INDICATION
  20. ACTEMRA [Suspect]
     Active Substance: TOCILIZUMAB
     Indication: STILL^S DISEASE
     Route: 042
  21. PREDNISONE. [Concomitant]
     Active Substance: PREDNISONE
     Dosage: STRATED IN EARLY APR/2015
  22. FOLIC ACID. [Concomitant]
     Active Substance: FOLIC ACID
     Indication: PRODUCT USED FOR UNKNOWN INDICATION

REACTIONS (69)
  - Nasopharyngitis [Unknown]
  - Rash macular [Not Recovered/Not Resolved]
  - Heart rate decreased [Unknown]
  - Intentional product use issue [Unknown]
  - Tooth disorder [Unknown]
  - Peripheral swelling [Unknown]
  - Swelling [Unknown]
  - Joint effusion [Unknown]
  - Nasopharyngitis [Unknown]
  - Blood pressure systolic increased [Unknown]
  - Scratch [Not Recovered/Not Resolved]
  - Blood pressure diastolic abnormal [Unknown]
  - Localised infection [Recovering/Resolving]
  - Bacterial rhinitis [Not Recovered/Not Resolved]
  - Oral herpes [Recovered/Resolved]
  - Pain [Recovering/Resolving]
  - Peripheral swelling [Unknown]
  - Joint swelling [Not Recovered/Not Resolved]
  - Limb injury [Not Recovered/Not Resolved]
  - Skin ulcer [Unknown]
  - Rash [Unknown]
  - Haematoma [Recovering/Resolving]
  - Blood pressure increased [Not Recovered/Not Resolved]
  - Skin cancer [Not Recovered/Not Resolved]
  - Arthritis [Not Recovered/Not Resolved]
  - Tendon disorder [Not Recovered/Not Resolved]
  - Blood pressure diastolic decreased [Unknown]
  - Impaired healing [Unknown]
  - Rash [Recovered/Resolved]
  - Fungal skin infection [Not Recovered/Not Resolved]
  - Wound [Not Recovered/Not Resolved]
  - Tooth extraction [Unknown]
  - Infection [Recovering/Resolving]
  - Gingival disorder [Unknown]
  - Hernia [Recovered/Resolved]
  - Erythema [Unknown]
  - Pruritus [Unknown]
  - Off label use [Unknown]
  - Still^s disease [Not Recovered/Not Resolved]
  - Dental caries [Unknown]
  - Blood pressure decreased [Unknown]
  - Arthralgia [Unknown]
  - Confusional state [Recovered/Resolved]
  - Joint swelling [Not Recovered/Not Resolved]
  - Rash [Unknown]
  - Limb discomfort [Unknown]
  - Oxygen saturation decreased [Unknown]
  - Arthropathy [Unknown]
  - Muscle swelling [Recovering/Resolving]
  - Cataract [Not Recovered/Not Resolved]
  - Arthralgia [Not Recovered/Not Resolved]
  - Blood pressure increased [Unknown]
  - Pyrexia [Unknown]
  - Hyperferritinaemia [Unknown]
  - C-reactive protein increased [Unknown]
  - Oropharyngeal pain [Not Recovered/Not Resolved]
  - Skin fissures [Unknown]
  - Heart rate decreased [Unknown]
  - Staphylococcal infection [Recovered/Resolved]
  - Haemorrhage [Not Recovered/Not Resolved]
  - Infusion related reaction [Unknown]
  - Rash erythematous [Not Recovered/Not Resolved]
  - Fungal infection [Not Recovered/Not Resolved]
  - Cough [Unknown]
  - Weight decreased [Unknown]
  - Blood pressure fluctuation [Unknown]
  - Myositis [Recovering/Resolving]
  - Tendon injury [Recovering/Resolving]
  - Muscle mass [Unknown]

NARRATIVE: CASE EVENT DATE: 2013
